FAERS Safety Report 9596404 (Version 1)
Quarter: 2013Q4

REPORT INFORMATION
  Report Type: Spontaneous
  Country: CA (occurrence: CA)
  Receive Date: 20131004
  Receipt Date: 20131004
  Transmission Date: 20140711
  Serious: Yes (Other)
  Sender: FDA-Public Use
  Company Number: CA-ASTRAZENECA-2013SE72993

PATIENT
  Sex: Female

DRUGS (6)
  1. ZOLADEX [Suspect]
     Route: 058
  2. TAMOXIFEN [Suspect]
     Route: 048
  3. XELODA [Suspect]
     Route: 065
  4. FEMARA [Suspect]
     Route: 048
  5. TAXOTERE [Suspect]
     Route: 065
  6. VINORELBINE TARTRATE [Suspect]
     Route: 065

REACTIONS (2)
  - Breast cancer [Unknown]
  - Malignant neoplasm progression [Unknown]
